FAERS Safety Report 23692125 (Version 1)
Quarter: 2024Q2

REPORT INFORMATION
  Report Type: Spontaneous
  Country: US (occurrence: US)
  Receive Date: 20240401
  Receipt Date: 20240401
  Transmission Date: 20240716
  Serious: Yes (Hospitalization, Other)
  Sender: FDA-Public Use
  Company Number: US-Covis Pharma GmbH-2024COV00328

PATIENT
  Age: 81 Year
  Sex: Male

DRUGS (1)
  1. LANOXIN [Suspect]
     Active Substance: DIGOXIN

REACTIONS (2)
  - Pneumonia aspiration [Unknown]
  - BRASH syndrome [Recovered/Resolved]
